FAERS Safety Report 5653462-6 (Version None)
Quarter: 2008Q1

REPORT INFORMATION
  Report Type: 
  Country: None (occurrence: None)
  Receive Date: 20080306
  Receipt Date: 20080229
  Transmission Date: 20080703
  Serious: Yes (Hospitalization)
  Sender: FDA-Public Use
  Company Number: B0511208A

PATIENT
  Age: 31 Year
  Sex: Male

DRUGS (9)
  1. NELARABINE [Suspect]
     Route: 042
     Dates: start: 20070423, end: 20070629
  2. VFEND [Suspect]
     Dates: start: 20070801
  3. SANDIMMUNE [Suspect]
     Dates: start: 20070801
  4. TAVANIC [Suspect]
     Route: 048
     Dates: start: 20070801, end: 20070903
  5. CIPRALEX [Concomitant]
     Dates: end: 20070821
  6. TRAMADOL HCL [Concomitant]
  7. ACETAMINOPHEN [Concomitant]
  8. OXASCAND [Concomitant]
  9. ZOLPIDEM TARTRATE [Concomitant]

REACTIONS (7)
  - ATAXIA [None]
  - BALANCE DISORDER [None]
  - CACHEXIA [None]
  - GAIT DISTURBANCE [None]
  - MUSCLE ATROPHY [None]
  - PARAESTHESIA [None]
  - POLYNEUROPATHY [None]
